FAERS Safety Report 6299611-0 (Version None)
Quarter: 2009Q3

REPORT INFORMATION
  Report Type: 
  Country: None (occurrence: None)
  Receive Date: 20090806
  Receipt Date: 20090731
  Transmission Date: 20100115
  Serious: Yes (Other)
  Sender: FDA-Public Use
  Company Number: US-ELI_LILLY_AND_COMPANY-US200907007289

PATIENT
  Sex: Female
  Weight: 81.633 kg

DRUGS (13)
  1. HUMALOG [Suspect]
     Dosage: UNK, UNK
     Dates: start: 19960614
  2. HUMALOG [Suspect]
  3. HUMULIN N [Suspect]
  4. HUMULIN U [Suspect]
     Dates: end: 20050101
  5. LANTUS [Concomitant]
     Dosage: UNK, UNK
     Dates: start: 20050101
  6. LEVEMIR [Concomitant]
     Dosage: UNK, UNK
     Dates: start: 20050101
  7. XENICAL [Concomitant]
  8. LEVOXYL [Concomitant]
  9. CYMBALTA [Concomitant]
     Dosage: 60 MG, UNK
  10. AVALIDE [Concomitant]
  11. AMLODIPINE [Concomitant]
     Dosage: 5 MG, UNK
  12. ATENOLOL [Concomitant]
     Dosage: 50 MG, EACH EVENING
  13. VITAMINS [Concomitant]

REACTIONS (11)
  - ARTHRITIS [None]
  - ARTHROPATHY [None]
  - BLOOD GLUCOSE DECREASED [None]
  - BLOOD GLUCOSE INCREASED [None]
  - GLYCOSYLATED HAEMOGLOBIN INCREASED [None]
  - HORMONE LEVEL ABNORMAL [None]
  - HYPOGLYCAEMIC UNCONSCIOUSNESS [None]
  - MYOPIA [None]
  - PAIN IN EXTREMITY [None]
  - PANCREATIC CYST [None]
  - WEIGHT INCREASED [None]
